FAERS Safety Report 8962362 (Version 1)
Quarter: 2012Q4

REPORT INFORMATION
  Report Type: Spontaneous
  Country: US (occurrence: None)
  Receive Date: 20121206
  Receipt Date: 20121206
  Transmission Date: 20130627
  Serious: Yes (Hospitalization)
  Sender: FDA-Public Use
  Company Number: 2012ST000153

PATIENT
  Sex: Male

DRUGS (2)
  1. OMEPRAZOLE (OMEPRAZOLE) [Suspect]
     Indication: PORTAL HYPERTENSIVE GASTROPATHY
     Dosage: ; PO
  2. ANTIPSYCHOTICS [Concomitant]

REACTIONS (5)
  - Hypomagnesaemia [None]
  - Hypocalcaemia [None]
  - Pyrexia [None]
  - Urinary incontinence [None]
  - Electrocardiogram QT prolonged [None]
